FAERS Safety Report 6076711-1 (Version None)
Quarter: 2009Q1

REPORT INFORMATION
  Report Type: 
  Country: None (occurrence: None)
  Receive Date: 20090213
  Receipt Date: 20090206
  Transmission Date: 20090719
  Serious: Yes (Hospitalization)
  Sender: FDA-Public Use
  Company Number: US-NOVOPROD-279676

PATIENT
  Sex: Male
  Weight: 88 kg

DRUGS (5)
  1. NOVOSEVEN [Suspect]
     Indication: HAEMORRHAGE
     Dosage: 10 MG Q 2 HOURS X 3 DOSES
     Route: 042
     Dates: start: 20080914, end: 20080914
  2. DILAUDID [Concomitant]
     Indication: PAIN
     Dosage: 4 MG, 1-2 TABS QD
     Route: 048
     Dates: start: 20080915, end: 20080920
  3. DILAUDID [Concomitant]
     Dosage: 4 MG, 1-2 TABS QD
     Route: 048
     Dates: start: 20080921, end: 20080926
  4. ZESTRIL [Concomitant]
     Indication: HYPERTENSION
     Dosage: 5 MG, QD
     Route: 048
     Dates: start: 20080915
  5. LISINOPRIL [Concomitant]
     Indication: HYPERTENSION
     Dosage: 5 MG, QD
     Route: 048
     Dates: start: 20080915

REACTIONS (1)
  - RENAL HAEMORRHAGE [None]
